FAERS Safety Report 15859515 (Version 5)
Quarter: 2020Q3

REPORT INFORMATION
  Report Type: Report from Study
  Country: CA (occurrence: CA)
  Receive Date: 20190123
  Receipt Date: 20200922
  Transmission Date: 20201102
  Serious: Yes (Other)
  Sender: FDA-Public Use
  Company Number: PHHY2018CA032559

PATIENT
  Age: 61 Year
  Sex: Female

DRUGS (5)
  1. ZOMETA [Suspect]
     Active Substance: ZOLEDRONIC ACID
     Indication: BREAST CANCER METASTATIC
     Dosage: UNK
     Route: 065
  2. KISQALI [Suspect]
     Active Substance: RIBOCICLIB
     Indication: BREAST CANCER METASTATIC
     Dosage: 3 DF (600 MG), QD
     Route: 048
     Dates: start: 20180620
  3. LETROZOLE. [Suspect]
     Active Substance: LETROZOLE
     Indication: BREAST CANCER METASTATIC
     Dosage: UNK
     Route: 065
  4. KISQALI [Interacting]
     Active Substance: RIBOCICLIB
     Dosage: 400 MG, QD
     Route: 048
  5. KISQALI [Interacting]
     Active Substance: RIBOCICLIB
     Dosage: 200 MG, QD
     Route: 048

REACTIONS (7)
  - Incorrect dose administered [Unknown]
  - Alopecia [Unknown]
  - Drug interaction [Unknown]
  - Dysmenorrhoea [Unknown]
  - Platelet count abnormal [Unknown]
  - White blood cell count abnormal [Unknown]
  - Pneumonia [Unknown]

NARRATIVE: CASE EVENT DATE: 20180620
